FAERS Safety Report 14517270 (Version 5)
Quarter: 2019Q1

REPORT INFORMATION
  Report Type: Report from Study
  Country: FR (occurrence: FR)
  Receive Date: 20180212
  Receipt Date: 20190315
  Transmission Date: 20190417
  Serious: Yes (Other)
  Sender: FDA-Public Use
  Company Number: FR-ROCHE-1890165

PATIENT

DRUGS (5)
  1. RITUXIMAB. [Suspect]
     Active Substance: RITUXIMAB
     Indication: DIFFUSE LARGE B-CELL LYMPHOMA
     Route: 042
  2. CC-292 [Suspect]
     Active Substance: SPEBRUTINIB
     Indication: DIFFUSE LARGE B-CELL LYMPHOMA
     Route: 048
  3. CC-122 [Suspect]
     Active Substance: AVADOMIDE
     Route: 048
  4. CC-122 [Suspect]
     Active Substance: AVADOMIDE
     Indication: DIFFUSE LARGE B-CELL LYMPHOMA
     Dosage: 1MG, 2MG, 3MG, OR 4MG WAS GIVEN ORALLY QD OR FOR 5 OUT OF 7 DAYS/WEEK (5/7D).
     Route: 048
  5. CC-223 [Suspect]
     Active Substance: INVESTIGATIONAL PRODUCT
     Indication: DIFFUSE LARGE B-CELL LYMPHOMA
     Dosage: 15MG, 20MG, OR 30MG WAS GIVEN ORALLY QD
     Route: 048

REACTIONS (18)
  - Asthenia [Unknown]
  - Neutropenia [Unknown]
  - Rash [Unknown]
  - Cough [Unknown]
  - Pain in extremity [Unknown]
  - Thrombocytopenia [Unknown]
  - Diarrhoea [Unknown]
  - Lipase increased [Unknown]
  - Abdominal pain [Unknown]
  - Constipation [Unknown]
  - Infection [Unknown]
  - Angiopathy [Unknown]
  - Neutrophil count decreased [Unknown]
  - Fatigue [Unknown]
  - Anaemia [Unknown]
  - Febrile neutropenia [Unknown]
  - Oedema peripheral [Unknown]
  - Dizziness [Unknown]
